FAERS Safety Report 19282717 (Version 1)
Quarter: 2021Q2

REPORT INFORMATION
  Report Type: Report from Study
  Country: GB (occurrence: GB)
  Receive Date: 20210521
  Receipt Date: 20210521
  Transmission Date: 20210717
  Serious: Yes (Other)
  Sender: FDA-Public Use
  Company Number: GB-TEVA-2021-GB-1913072

PATIENT
  Sex: Male

DRUGS (1)
  1. COPAXONE [Suspect]
     Active Substance: GLATIRAMER ACETATE
     Indication: MULTIPLE SCLEROSIS
     Route: 058
     Dates: start: 2018

REACTIONS (10)
  - Pyrexia [Unknown]
  - Urticaria [Unknown]
  - Mass [Unknown]
  - Hypersensitivity [Unknown]
  - Oral pruritus [Unknown]
  - Rash erythematous [Unknown]
  - Anaphylactic reaction [Unknown]
  - Rash [Unknown]
  - Product dose omission issue [Unknown]
  - Malaise [Unknown]
